FAERS Safety Report 6100043-6 (Version None)
Quarter: 2009Q1

REPORT INFORMATION
  Report Type: 
  Country: None (occurrence: None)
  Receive Date: 20090303
  Receipt Date: 20090220
  Transmission Date: 20090719
  Serious: Yes (Death, Hospitalization)
  Sender: FDA-Public Use
  Company Number: B0560877A

PATIENT
  Age: 47 Year
  Sex: Male

DRUGS (4)
  1. RETROVIR [Suspect]
     Indication: DRUG USE FOR UNKNOWN INDICATION
     Dosage: 300MG TWICE PER DAY
     Route: 048
     Dates: start: 20051028, end: 20081201
  2. MARAVIROC [Suspect]
     Indication: DRUG USE FOR UNKNOWN INDICATION
     Dosage: 300MG TWICE PER DAY
     Route: 048
     Dates: start: 20051028, end: 20081201
  3. ISENTRESS [Suspect]
     Indication: DRUG USE FOR UNKNOWN INDICATION
     Dosage: 400MG TWICE PER DAY
     Route: 048
     Dates: start: 20071023, end: 20081201
  4. VIREAD [Suspect]
     Dosage: 245MG PER DAY
     Route: 048
     Dates: start: 20051028, end: 20081201

REACTIONS (13)
  - BLOOD GASES ABNORMAL [None]
  - CARDIAC ARREST [None]
  - HEPATOCELLULAR INJURY [None]
  - HYPOXIA [None]
  - LEGIONELLA INFECTION [None]
  - LUNG DISORDER [None]
  - OXYGEN SATURATION DECREASED [None]
  - PNEUMONIA [None]
  - PYREXIA [None]
  - RENAL FAILURE ACUTE [None]
  - RESPIRATORY DISTRESS [None]
  - SEPTIC SHOCK [None]
  - SYSTEMIC MYCOSIS [None]
